FAERS Safety Report 11856917 (Version 1)
Quarter: 2015Q4

REPORT INFORMATION
  Report Type: Spontaneous
  Country: US (occurrence: US)
  Receive Date: 20151221
  Receipt Date: 20151221
  Transmission Date: 20160305
  Serious: No
  Sender: FDA-Public Use
  Company Number: US-MYLANLABS-2015M1019945

PATIENT
  Sex: Female

DRUGS (1)
  1. PROPRANOLOL HYDROCHLORIDE TABLETS, USP [Suspect]
     Active Substance: PROPRANOLOL HYDROCHLORIDE
     Dosage: UNK MG, UNK

REACTIONS (5)
  - Reaction to drug excipients [Not Recovered/Not Resolved]
  - Asthma [Unknown]
  - Vomiting [Unknown]
  - Gastrooesophageal reflux disease [Unknown]
  - Hypersensitivity [Not Recovered/Not Resolved]
